FAERS Safety Report 8826213 (Version 2)
Quarter: 2012Q4

REPORT INFORMATION
  Report Type: 
  Country: GB (occurrence: GB)
  Receive Date: 20121005
  Receipt Date: 20121008
  Transmission Date: 20130627
  Serious: Yes (Other)
  Sender: FDA-Public Use
  Company Number: GB-ROCHE-1141341

PATIENT
  Age: 64 Year
  Sex: Male

DRUGS (11)
  1. CELLCEPT [Suspect]
     Indication: PROPHYLAXIS
     Route: 048
  2. TACROLIMUS [Concomitant]
     Route: 048
  3. ALENDRONATE [Concomitant]
     Route: 048
  4. EPREX [Concomitant]
     Route: 058
  5. ALFACALCIDOL [Concomitant]
     Route: 048
  6. HUMULIN [Concomitant]
  7. INSULATARD [Concomitant]
  8. OMEPRAZOLE [Concomitant]
     Route: 048
  9. PREDNISOLONE [Concomitant]
     Route: 065
  10. RAMIPRIL [Concomitant]
     Route: 065
  11. WARFARIN [Concomitant]

REACTIONS (1)
  - Hyperammonaemia [Unknown]
